FAERS Safety Report 5694705-2 (Version None)
Quarter: 2008Q2

REPORT INFORMATION
  Report Type: 
  Country: None (occurrence: None)
  Receive Date: 20080404
  Receipt Date: 20080325
  Transmission Date: 20081010
  Serious: Yes (Disabling)
  Sender: FDA-Public Use
  Company Number: B0509000A

PATIENT
  Age: 19 Year
  Sex: Female
  Weight: 57 kg

DRUGS (2)
  1. DEROXAT [Suspect]
     Dosage: 20MG PER DAY
     Route: 048
     Dates: start: 20020406
  2. PAROXETINE HCL [Suspect]
     Dosage: 20MG PER DAY
     Route: 048

REACTIONS (3)
  - DEPENDENCE [None]
  - PAIN IN EXTREMITY [None]
  - TREMOR [None]
